FAERS Safety Report 4648815-9 (Version None)
Quarter: 2005Q2

REPORT INFORMATION
  Report Type: 
  Country: None (occurrence: None)
  Receive Date: 20050429
  Receipt Date: 20050117
  Transmission Date: 20051028
  Serious: Yes (Hospitalization, Disabling)
  Sender: FDA-Public Use
  Company Number: US-MERCK-0501USA02879

PATIENT
  Age: 56 Year
  Sex: Male
  Weight: 117 kg

DRUGS (18)
  1. VIOXX [Suspect]
     Indication: ARTHRITIS
     Route: 048
     Dates: start: 20020901, end: 20040201
  2. PLAVIX [Concomitant]
     Route: 065
     Dates: start: 20030201
  3. LIPITOR [Concomitant]
     Route: 065
     Dates: start: 20030201
  4. INDOCIN [Concomitant]
     Route: 065
     Dates: start: 20030201
  5. PAXIL [Concomitant]
     Route: 065
     Dates: start: 20030411, end: 20040101
  6. TENORMIN [Concomitant]
     Route: 065
  7. ASPIRIN [Concomitant]
     Route: 065
  8. LISINOPRIL [Concomitant]
     Route: 065
  9. NITROGLYCERIN [Concomitant]
     Route: 065
  10. ATIVAN [Concomitant]
     Route: 065
  11. ATIVAN [Concomitant]
     Route: 065
     Dates: start: 20030206
  12. ATIVAN [Concomitant]
     Route: 065
     Dates: start: 20030411
  13. GARLIC EXTRACT [Concomitant]
     Route: 065
  14. ASCORBIC ACID [Concomitant]
     Route: 065
  15. ADVAIR DISKUS 100/50 [Concomitant]
     Route: 065
  16. PRINIVIL [Concomitant]
     Route: 065
  17. FLEXERIL [Concomitant]
     Route: 065
     Dates: start: 20020601
  18. ZESTRIL [Concomitant]
     Route: 065

REACTIONS (50)
  - ACUTE MYOCARDIAL INFARCTION [None]
  - ANGINA PECTORIS [None]
  - ANGINA UNSTABLE [None]
  - ANXIETY [None]
  - ASTHENIA [None]
  - BACK INJURY [None]
  - BACK PAIN [None]
  - BALANCE DISORDER [None]
  - BONE PAIN [None]
  - CEREBELLAR ATAXIA [None]
  - CEREBELLAR ATROPHY [None]
  - CEREBROVASCULAR ACCIDENT [None]
  - CHEST PAIN [None]
  - CHILLS [None]
  - CONVULSION [None]
  - COORDINATION ABNORMAL [None]
  - CORONARY ARTERY THROMBOSIS [None]
  - DEPRESSION [None]
  - DISCOMFORT [None]
  - DIZZINESS [None]
  - DYSLIPIDAEMIA [None]
  - DYSPNOEA [None]
  - ECCHYMOSIS [None]
  - EMOTIONAL DISTRESS [None]
  - FATIGUE [None]
  - GASTROOESOPHAGEAL REFLUX DISEASE [None]
  - HAEMATOMA [None]
  - HEADACHE [None]
  - HYPERHIDROSIS [None]
  - HYPOAESTHESIA [None]
  - ISCHAEMIC CARDIOMYOPATHY [None]
  - LUMBAR RADICULOPATHY [None]
  - MYOCARDIAL INFARCTION [None]
  - NASOPHARYNGITIS [None]
  - OEDEMA PERIPHERAL [None]
  - OTITIS MEDIA [None]
  - PAIN [None]
  - PARAESTHESIA [None]
  - PHARYNGOLARYNGEAL PAIN [None]
  - RADICULOPATHY [None]
  - SLEEP APNOEA SYNDROME [None]
  - SNORING [None]
  - SOMNOLENCE [None]
  - SPEECH DISORDER [None]
  - STRESS [None]
  - VERTIGO [None]
  - VESTIBULAR NEURONITIS [None]
  - VISION BLURRED [None]
  - VITAMIN B12 DEFICIENCY [None]
  - WEIGHT DECREASED [None]
